FAERS Safety Report 13157532 (Version 1)
Quarter: 2017Q1

REPORT INFORMATION
  Report Type: Spontaneous
  Country: US (occurrence: US)
  Receive Date: 20170125
  Receipt Date: 20170125
  Transmission Date: 20170428
  Serious: Yes (Death)
  Sender: FDA-Public Use
  Company Number: None

PATIENT
  Age: 77 Year
  Sex: Male

DRUGS (1)
  1. ESBRIET [Suspect]
     Active Substance: PIRFENIDONE
     Indication: IDIOPATHIC PULMONARY FIBROSIS
     Route: 048
     Dates: start: 20170105, end: 20170118

REACTIONS (4)
  - Unresponsive to stimuli [None]
  - Hypotension [None]
  - Cardiac arrest [None]
  - Pulse absent [None]

NARRATIVE: CASE EVENT DATE: 20170118
